FAERS Safety Report 18321099 (Version 1)
Quarter: 2020Q3

REPORT INFORMATION
  Report Type: Spontaneous
  Country: GB (occurrence: GB)
  Receive Date: 20200928
  Receipt Date: 20200928
  Transmission Date: 20201103
  Serious: Yes (Hospitalization)
  Sender: FDA-Public Use
  Company Number: GB-TEVA-2020-GB-1832881

PATIENT
  Age: 51 Year
  Sex: Male

DRUGS (3)
  1. PROPYLTHIOURACIL. [Suspect]
     Active Substance: PROPYLTHIOURACIL
     Indication: BASEDOW^S DISEASE
     Route: 065
  2. CARBIMAZOLE [Suspect]
     Active Substance: CARBIMAZOLE
     Indication: BASEDOW^S DISEASE
     Route: 065
  3. CARBIMAZOLE [Suspect]
     Active Substance: CARBIMAZOLE
     Dosage: LOW DOSE
     Route: 065

REACTIONS (7)
  - Hypergammaglobulinaemia [Unknown]
  - Glomerulonephritis rapidly progressive [Recovering/Resolving]
  - IgA nephropathy [Recovering/Resolving]
  - Anti-neutrophil cytoplasmic antibody positive vasculitis [Recovered/Resolved]
  - Affective disorder [Unknown]
  - Renal impairment [Recovering/Resolving]
  - Lymphocytic infiltration [Unknown]
